FAERS Safety Report 6628220-6 (Version None)
Quarter: 2010Q1

REPORT INFORMATION
  Report Type: 
  Country: None (occurrence: None)
  Receive Date: 20100311
  Receipt Date: 20100302
  Transmission Date: 20100710
  Serious: Yes (Other)
  Sender: FDA-Public Use
  Company Number: ES-SANOFI-AVENTIS-2010SA012000

PATIENT
  Age: 61 Year
  Sex: Female

DRUGS (6)
  1. PLAVIX [Suspect]
     Route: 048
  2. PLAVIX [Suspect]
     Route: 048
  3. ANTIDEPRESSANTS [Concomitant]
     Indication: DEPRESSION
     Route: 065
  4. ANTIDEPRESSANTS [Concomitant]
     Route: 065
  5. LEXATIN [Concomitant]
     Indication: DEPRESSION
     Route: 065
  6. PARACETAMOL [Concomitant]
     Indication: DRUG USE FOR UNKNOWN INDICATION
     Dosage: 2 OR 3 TABLETS DAILY
     Route: 065

REACTIONS (6)
  - CONVULSION [None]
  - EYELID PAIN [None]
  - GAIT DISTURBANCE [None]
  - HEADACHE [None]
  - OFF LABEL USE [None]
  - WHIPLASH INJURY [None]
